FAERS Safety Report 5953587-1 (Version None)
Quarter: 2008Q4

REPORT INFORMATION
  Report Type: 
  Country: None (occurrence: None)
  Receive Date: 20081114
  Receipt Date: 20081112
  Transmission Date: 20090506
  Serious: Yes (Other)
  Sender: FDA-Public Use
  Company Number: A0756002A

PATIENT
  Sex: Female

DRUGS (1)
  1. LAMICTAL [Suspect]
     Indication: PANIC REACTION
     Dosage: 150MG UNKNOWN
     Route: 048
     Dates: start: 20060901

REACTIONS (5)
  - COLD SWEAT [None]
  - DEPENDENCE [None]
  - FEELING ABNORMAL [None]
  - TREMOR [None]
  - WITHDRAWAL SYNDROME [None]
